FAERS Safety Report 5695390-6 (Version None)
Quarter: 2008Q2

REPORT INFORMATION
  Report Type: 
  Country: None (occurrence: None)
  Receive Date: 20080402
  Receipt Date: 20080227
  Transmission Date: 20081010
  Serious: Yes (Hospitalization, Other)
  Sender: FDA-Public Use
  Company Number: 2008S1003301

PATIENT
  Age: 80 Year
  Sex: Male

DRUGS (7)
  1. BACLOFEN [Suspect]
     Indication: MUSCLE SPASTICITY
     Dosage: 900 UG;INTRATHECAL;DAILY
     Route: 037
  2. DOXAZOSIN (DOXAZOSIN) [Concomitant]
  3. ENALAPRIL MALEATE [Concomitant]
  4. HYDROCHLOROTHIAZIDE [Concomitant]
  5. OMEPRAZOLE [Concomitant]
  6. BROMAZEPAM (BROMAZEPAM) [Concomitant]
  7. DIPYRONE (METAMIZOLE SODIUM) [Concomitant]

REACTIONS (8)
  - BLOOD CREATININE INCREASED [None]
  - BLOOD SODIUM INCREASED [None]
  - BLOOD UREA INCREASED [None]
  - GRAND MAL CONVULSION [None]
  - INCORRECT DRUG ADMINISTRATION DURATION [None]
  - NEUROLEPTIC MALIGNANT SYNDROME [None]
  - NO THERAPEUTIC RESPONSE [None]
  - RESPIRATORY ALKALOSIS [None]
